FAERS Safety Report 20154808 (Version 1)
Quarter: 2021Q4

REPORT INFORMATION
  Report Type: Spontaneous
  Country: CA (occurrence: CA)
  Receive Date: 20211207
  Receipt Date: 20211207
  Transmission Date: 20220303
  Serious: Yes (Other)
  Sender: FDA-Public Use
  Company Number: CA-TEVA-2021-CA-1984167

PATIENT
  Age: 41 Year
  Sex: Female

DRUGS (9)
  1. MORPHINE SULFATE [Suspect]
     Active Substance: MORPHINE SULFATE
     Indication: Spinal anaesthesia
     Route: 065
  2. BUPIVACAINE [Suspect]
     Active Substance: BUPIVACAINE
     Indication: Spinal anaesthesia
     Route: 065
  3. CARBETOCIN [Suspect]
     Active Substance: CARBETOCIN
     Indication: Spinal anaesthesia
     Route: 065
  4. FENTANYL [Suspect]
     Active Substance: FENTANYL
     Indication: Spinal anaesthesia
     Route: 034
  5. ONDANSETRON [Concomitant]
     Active Substance: ONDANSETRON
  6. PHENYLEPHRINE HCL [Concomitant]
     Active Substance: PHENYLEPHRINE HYDROCHLORIDE
  7. RANITIDINE [Concomitant]
     Active Substance: RANITIDINE
  8. ALBUTEROL [Concomitant]
     Active Substance: ALBUTEROL
  9. DECADRON [Concomitant]
     Active Substance: DEXAMETHASONE

REACTIONS (7)
  - Aphasia [Unknown]
  - Bradykinesia [Unknown]
  - Sedation [Unknown]
  - Slow response to stimuli [Unknown]
  - Incorrect route of product administration [Unknown]
  - Product use in unapproved indication [Unknown]
  - Off label use [Unknown]
